FAERS Safety Report 6100366-0 (Version None)
Quarter: 2009Q1

REPORT INFORMATION
  Report Type: 
  Country: None (occurrence: None)
  Receive Date: 20090226
  Receipt Date: 20090213
  Transmission Date: 20090719
  Serious: Yes (Hospitalization)
  Sender: FDA-Public Use
  Company Number: 231686K09USA

PATIENT
  Age: 42 Year
  Sex: Female

DRUGS (6)
  1. REBIF [Suspect]
     Indication: MULTIPLE SCLEROSIS
     Dosage: 44 MCG, 3 IN 1 WEEKS, SUBCUTANEOUS
     Route: 058
     Dates: start: 20061109
  2. LEXAPRO [Concomitant]
  3. AMPICILLIN (AMPICILLIN /00000501/) [Concomitant]
  4. ALLEGRA [Concomitant]
  5. KEPPRA [Concomitant]
  6. TEGRETOL [Concomitant]

REACTIONS (1)
  - CONVULSION [None]
